FAERS Safety Report 12426473 (Version 2)
Quarter: 2017Q1

REPORT INFORMATION
  Report Type: Report from Study
  Country: US (occurrence: US)
  Receive Date: 20160601
  Receipt Date: 20170106
  Transmission Date: 20170428
  Serious: Yes (Hospitalization, Other)
  Sender: FDA-Public Use
  Company Number: US-MYLANLABS-2016M1022364

PATIENT

DRUGS (2)
  1. CLOZAPINE. [Suspect]
     Active Substance: CLOZAPINE
     Dosage: 125 MG, QD
     Dates: start: 201612
  2. CLOZAPINE. [Suspect]
     Active Substance: CLOZAPINE
     Indication: PRODUCT USED FOR UNKNOWN INDICATION
     Dosage: 125 MG, QD
     Route: 048
     Dates: start: 201605, end: 20161209

REACTIONS (4)
  - Hospitalisation [Unknown]
  - Pulmonary mass [Unknown]
  - Pancreatitis [Unknown]
  - Hypotension [Unknown]

NARRATIVE: CASE EVENT DATE: 20160525
